FAERS Safety Report 10108549 (Version 1)
Quarter: 2014Q2

REPORT INFORMATION
  Report Type: Spontaneous
  Country: US (occurrence: US)
  Receive Date: 20140425
  Receipt Date: 20140425
  Transmission Date: 20141212
  Serious: Yes (Other)
  Sender: FDA-Public Use
  Company Number: US-ABBVIE-14P-163-1228336-00

PATIENT
  Sex: Female
  Weight: 49.94 kg

DRUGS (3)
  1. SYNTHROID [Suspect]
     Indication: HYPOTHYROIDISM
     Dates: start: 2002
  2. SYNTHROID [Suspect]
  3. CYTOMEL [Suspect]
     Indication: HYPOTHYROIDISM

REACTIONS (4)
  - Thyroidectomy [Unknown]
  - Autoimmune thyroiditis [Unknown]
  - Autoimmune disorder [Unknown]
  - Thyroid function test abnormal [Unknown]
